FAERS Safety Report 8204857-8 (Version None)
Quarter: 2012Q1

REPORT INFORMATION
  Report Type: 
  Country: None (occurrence: None)
  Receive Date: 20120309
  Receipt Date: 20120228
  Transmission Date: 20120608
  Serious: Yes (Hospitalization, Other)
  Sender: FDA-Public Use
  Company Number: 2012P1008413

PATIENT
  Age: 36 Year
  Sex: Female

DRUGS (2)
  1. ALBENDAZOLE (NO PREF. NAME) [Suspect]
     Indication: HELMINTHIC INFECTION
     Dosage: 400 MG, X1, PO
     Route: 048
  2. IVERMECTIN (NO PREF. NAME) [Suspect]
     Indication: HELMINTHIC INFECTION
     Dosage: 12 MG,X1, PO
     Route: 048

REACTIONS (7)
  - PSYCHOTIC DISORDER [None]
  - DECREASED APPETITE [None]
  - FEAR [None]
  - SLEEP DISORDER [None]
  - PERSECUTORY DELUSION [None]
  - AGGRESSION [None]
  - HALLUCINATION, AUDITORY [None]
